FAERS Safety Report 8607886 (Version 3)
Quarter: 2014Q1

REPORT INFORMATION
  Report Type: Spontaneous
  Country: US (occurrence: US)
  Receive Date: 20120611
  Receipt Date: 20140107
  Transmission Date: 20141002
  Serious: Yes (Hospitalization, Disabling)
  Sender: FDA-Public Use
  Company Number: US-ASTRAZENECA-2012SE35321

PATIENT
  Age: 53 Year
  Sex: Female
  Weight: 78.5 kg

DRUGS (9)
  1. NEXIUM [Suspect]
     Indication: GASTROOESOPHAGEAL REFLUX DISEASE
     Dosage: ONCE
     Route: 048
  2. OMEPRAZOLE [Suspect]
     Route: 048
  3. LISINOPRIL [Concomitant]
     Indication: BLOOD PRESSURE ABNORMAL
  4. ASPIRIN [Concomitant]
     Dosage: 1 A DAY
  5. DOXEPIN [Concomitant]
     Indication: SLEEP DISORDER
     Dosage: 1 A DAY
  6. PERPHENAZINE [Concomitant]
     Indication: NERVOUS SYSTEM DISORDER
  7. FLUOXETINE [Concomitant]
     Indication: NERVOUS SYSTEM DISORDER
  8. AMLODIPINE BESYLATE [Concomitant]
     Indication: BLOOD PRESSURE ABNORMAL
  9. CRESTOR [Concomitant]
     Indication: BLOOD CHOLESTEROL INCREASED

REACTIONS (10)
  - Bipolar I disorder [Unknown]
  - Mental disorder [Unknown]
  - Osteoporosis [Unknown]
  - Multiple fractures [Unknown]
  - Arthropathy [Unknown]
  - Vitamin D deficiency [Unknown]
  - Calcium deficiency [Unknown]
  - Carpal tunnel syndrome [Unknown]
  - Rotator cuff syndrome [Unknown]
  - Bursitis [Unknown]
